FAERS Safety Report 7387679-X (Version None)
Quarter: 2011Q1

REPORT INFORMATION
  Report Type: 
  Country: None (occurrence: None)
  Receive Date: 20110331
  Receipt Date: 20110301
  Transmission Date: 20110831
  Serious: Yes (Hospitalization)
  Sender: FDA-Public Use
  Company Number: US-BAYER-201026294NA

PATIENT
  Sex: Female
  Weight: 90.703 kg

DRUGS (2)
  1. YASMIN [Suspect]
     Indication: ORAL CONTRACEPTION
     Dosage: UNK
  2. YAZ [Suspect]
     Indication: ORAL CONTRACEPTION
     Dates: start: 20080301

REACTIONS (5)
  - PNEUMONIA [None]
  - ATELECTASIS [None]
  - HAEMORRHAGIC INFARCTION [None]
  - PULMONARY EMBOLISM [None]
  - DEEP VEIN THROMBOSIS [None]
